FAERS Safety Report 8357229-X (Version None)
Quarter: 2012Q2

REPORT INFORMATION
  Report Type: 
  Country: None (occurrence: None)
  Receive Date: 20120514
  Receipt Date: 20120501
  Transmission Date: 20120825
  Serious: Yes (Death)
  Sender: FDA-Public Use
  Company Number: DE-CELGENEUS-062-21880-12050283

PATIENT

DRUGS (4)
  1. BUSULFAN [Concomitant]
     Indication: MULTIPLE MYELOMA
     Dosage: 12.2 MG/KG
     Route: 041
  2. REVLIMID [Suspect]
     Indication: MULTIPLE MYELOMA
     Route: 048
  3. ATG FRESEINUS [Concomitant]
     Indication: MULTIPLE MYELOMA
     Dosage: 20 MG/KG
     Route: 065
  4. CYCLOPHOSPHAMIDE [Concomitant]
     Indication: MULTIPLE MYELOMA
     Dosage: 120 MG/KG
     Route: 065

REACTIONS (1)
  - ADVERSE EVENT [None]
